FAERS Safety Report 8474888-1 (Version None)
Quarter: 2012Q2

REPORT INFORMATION
  Report Type: 
  Country: None (occurrence: None)
  Receive Date: 20120621
  Receipt Date: 20120611
  Transmission Date: 20120825
  Serious: Yes (Hospitalization)
  Sender: FDA-Public Use
  Company Number: TCI2012A03062

PATIENT
  Age: 78 Year
  Sex: Male

DRUGS (2)
  1. ROZEREM [Suspect]
     Indication: INSOMNIA
     Dosage: 8 MG (8 MG, 1 IN 1 D), PER ORAL
     Route: 048
     Dates: start: 20120526, end: 20120601
  2. ARICEPT [Suspect]
     Dosage: PER ORAL
     Route: 048
     Dates: start: 20120526, end: 20120601

REACTIONS (5)
  - LIP OEDEMA [None]
  - GLOSSITIS [None]
  - RASH [None]
  - LIP PRURITUS [None]
  - CHEILITIS [None]
